FAERS Safety Report 20723474 (Version 2)
Quarter: 2022Q3

REPORT INFORMATION
  Report Type: Spontaneous
  Country: FR (occurrence: FR)
  Receive Date: 20220419
  Receipt Date: 20220829
  Transmission Date: 20221027
  Serious: Yes (Other)
  Sender: FDA-Public Use
  Company Number: FR-AFSSAPS-AM20220907

PATIENT
  Age: 52 Year
  Sex: Male
  Weight: 121 kg

DRUGS (16)
  1. ACYCLOVIR [Suspect]
     Active Substance: ACYCLOVIR
     Indication: Lung disorder
     Dosage: UNK
     Route: 042
     Dates: start: 20220219, end: 20220221
  2. CEFEPIME [Suspect]
     Active Substance: CEFEPIME HYDROCHLORIDE
     Indication: Lung disorder
     Dosage: UNK
     Route: 042
     Dates: start: 20220211, end: 20220212
  3. CEFIDEROCOL SULFATE TOSYLATE [Suspect]
     Active Substance: CEFIDEROCOL SULFATE TOSYLATE
     Indication: Lung disorder
     Dosage: UNK
     Route: 042
     Dates: start: 20220223, end: 20220224
  4. CEFOTAXIME [Suspect]
     Active Substance: CEFOTAXIME SODIUM
     Indication: Lung disorder
     Dosage: 6 GRAM
     Route: 041
     Dates: start: 20220219, end: 20220222
  5. CEFOTAXIME [Suspect]
     Active Substance: CEFOTAXIME SODIUM
     Dosage: 6 GRAM
     Route: 042
     Dates: start: 20220219, end: 20220222
  6. PIPERACILLIN SODIUM\TAZOBACTAM SODIUM [Suspect]
     Active Substance: PIPERACILLIN SODIUM\TAZOBACTAM SODIUM
     Indication: Lung disorder
     Dosage: 12 GRAM, ONCE A DAY (IVSE)
     Route: 041
     Dates: start: 20220313, end: 20220316
  7. PIPERACILLIN SODIUM\TAZOBACTAM SODIUM [Suspect]
     Active Substance: PIPERACILLIN SODIUM\TAZOBACTAM SODIUM
     Dosage: 12 GRAM, ONCE A DAY (IVSE)
     Route: 042
     Dates: start: 20220313, end: 20220316
  8. AMIODARONE [Concomitant]
     Active Substance: AMIODARONE
     Indication: Product used for unknown indication
     Dosage: UNK
     Route: 065
  9. ARGATROBAN [Concomitant]
     Active Substance: ARGATROBAN
     Indication: Product used for unknown indication
     Dosage: UNK
     Route: 065
  10. ARGIPRESSIN [Concomitant]
     Active Substance: ARGIPRESSIN
     Indication: Product used for unknown indication
     Dosage: UNK
     Route: 065
  11. CISATRACURIUM [Concomitant]
     Active Substance: CISATRACURIUM
     Indication: Product used for unknown indication
     Dosage: UNK
     Route: 065
  12. FUROSEMIDE [Concomitant]
     Active Substance: FUROSEMIDE
     Indication: Product used for unknown indication
     Dosage: UNK
     Route: 065
  13. MIDAZOLAM [Concomitant]
     Active Substance: MIDAZOLAM
     Indication: Product used for unknown indication
     Dosage: UNK
     Route: 065
  14. NOREPINEPHRINE [Concomitant]
     Active Substance: NOREPINEPHRINE
     Indication: Product used for unknown indication
     Dosage: UNK
     Route: 065
  15. PANTOPRAZOLE [Concomitant]
     Active Substance: PANTOPRAZOLE
     Indication: Product used for unknown indication
     Dosage: UNK
     Route: 065
  16. PROPOFOL LIPURO [Concomitant]
     Active Substance: PROPOFOL
     Indication: Product used for unknown indication
     Dosage: UNK
     Route: 065

REACTIONS (1)
  - Drug reaction with eosinophilia and systemic symptoms [Recovered/Resolved]

NARRATIVE: CASE EVENT DATE: 20220317
